FAERS Safety Report 19187472 (Version 1)
Quarter: 2021Q2

REPORT INFORMATION
  Report Type: Spontaneous
  Country: None (occurrence: US)
  Receive Date: 20210428
  Receipt Date: 20210428
  Transmission Date: 20210717
  Serious: No
  Sender: FDA-Public Use
  Company Number: US-PERSON AND COVEY-2109880

PATIENT
  Age: 41 Year
  Sex: Female

DRUGS (1)
  1. DRYSOL [Suspect]
     Active Substance: ALUMINUM CHLORIDE
     Indication: HYPERHIDROSIS
     Route: 003
     Dates: start: 20210407

REACTIONS (1)
  - Eye irritation [Unknown]

NARRATIVE: CASE EVENT DATE: 20210407
